FAERS Safety Report 16833729 (Version 2)
Quarter: 2019Q3

REPORT INFORMATION
  Report Type: Spontaneous
  Country: US (occurrence: US)
  Receive Date: 20190920
  Receipt Date: 20190925
  Transmission Date: 20191005
  Serious: No
  Sender: FDA-Public Use
  Company Number: US-PFIZER INC-2019399676

PATIENT
  Age: 70 Year
  Sex: Female
  Weight: 82.55 kg

DRUGS (2)
  1. SERTRALINE HCL [Suspect]
     Active Substance: SERTRALINE HYDROCHLORIDE
     Indication: ANXIETY
  2. SERTRALINE HCL [Suspect]
     Active Substance: SERTRALINE HYDROCHLORIDE
     Indication: PANIC ATTACK
     Dosage: 150 MG, AS NEEDED (50MG 2 TABLETS ONCE A DAY BY MOUTH, AND 1 TABLET IN THE EVENING IF NEEDED)
     Route: 048

REACTIONS (1)
  - Drug ineffective [Not Recovered/Not Resolved]
